FAERS Safety Report 14950766 (Version 1)
Quarter: 2018Q2

REPORT INFORMATION
  Report Type: Spontaneous
  Country: IT (occurrence: IT)
  Receive Date: 20180530
  Receipt Date: 20180530
  Transmission Date: 20180711
  Serious: Yes (Other)
  Sender: FDA-Public Use
  Company Number: IT-ACCORD-049287

PATIENT
  Age: 66 Year
  Sex: Female
  Weight: 88 kg

DRUGS (3)
  1. FLUOROURACIL. [Suspect]
     Active Substance: FLUOROURACIL
     Indication: COLON CANCER METASTATIC
     Dosage: RECEIVED 4344 MG CYCLICAL FROM 14-JAN-2016 TO 30-MAR-2017, THEN WAS POSTPONED
     Route: 041
     Dates: start: 20170221
  2. OXALIPLATIN. [Suspect]
     Active Substance: OXALIPLATIN
     Indication: COLON CANCER METASTATIC
     Route: 042
     Dates: start: 20170221, end: 20170330
  3. IRINOTECAN [Suspect]
     Active Substance: IRINOTECAN
     Indication: COLON CANCER METASTATIC
     Dosage: RECEIVED 223.9 MG CYCLICAL FROM 21-FEB-2017 TO 30-MAR-2017, THEN WAS POSTPONED
     Route: 042
     Dates: start: 20170221

REACTIONS (3)
  - Neutropenia [Unknown]
  - Leukopenia [Unknown]
  - Diarrhoea [Recovering/Resolving]

NARRATIVE: CASE EVENT DATE: 20170224
